FAERS Safety Report 18520485 (Version 1)
Quarter: 2020Q4

REPORT INFORMATION
  Report Type: Other
  Country: IR (occurrence: IR)
  Receive Date: 20201118
  Receipt Date: 20201118
  Transmission Date: 20210114
  Serious: Yes (Death, Other)
  Sender: FDA-Public Use
  Company Number: IR-ROCHE-2712858

PATIENT
  Sex: Female

DRUGS (5)
  1. HYDROXYCHLOROQUINE [Concomitant]
     Active Substance: HYDROXYCHLOROQUINE
     Indication: COVID-19
  2. INSULIN [Concomitant]
     Active Substance: INSULIN NOS
  3. OSELTAMIVIR [Suspect]
     Active Substance: OSELTAMIVIR
     Indication: PRODUCT USED FOR UNKNOWN INDICATION
     Route: 064
  4. ENOXAPARIN [Concomitant]
     Active Substance: ENOXAPARIN
  5. ASPIRIN. [Concomitant]
     Active Substance: ASPIRIN

REACTIONS (6)
  - Gastrointestinal haemorrhage [Fatal]
  - Respiratory tract haemorrhage [Fatal]
  - Low birth weight baby [Unknown]
  - Neonatal respiratory distress syndrome [Unknown]
  - Premature delivery [Unknown]
  - Foetal exposure during pregnancy [Unknown]
